FAERS Safety Report 18144852 (Version 3)
Quarter: 2020Q4

REPORT INFORMATION
  Report Type: Spontaneous
  Country: US (occurrence: US)
  Receive Date: 20200813
  Receipt Date: 20201026
  Transmission Date: 20210113
  Serious: Yes (Hospitalization)
  Sender: FDA-Public Use
  Company Number: US-SA-2020SA206642

PATIENT

DRUGS (4)
  1. DUPIXENT [Suspect]
     Active Substance: DUPILUMAB
     Indication: DERMATITIS ATOPIC
     Dosage: 300 MG, QOW
     Route: 058
     Dates: start: 20200728
  2. PREDNISONE. [Suspect]
     Active Substance: PREDNISONE
     Indication: ARTHRALGIA
  3. DUPIXENT [Suspect]
     Active Substance: DUPILUMAB
     Indication: MELANOCYTIC NAEVUS
     Dosage: 600 MG, 1X
     Route: 058
     Dates: start: 2020, end: 2020
  4. PREDNISONE. [Suspect]
     Active Substance: PREDNISONE
     Indication: MYALGIA

REACTIONS (9)
  - Nausea [Recovered/Resolved]
  - Myalgia [Recovering/Resolving]
  - Serum sickness [Unknown]
  - Injection site urticaria [Unknown]
  - Fatigue [Recovering/Resolving]
  - Product use in unapproved indication [Unknown]
  - Arthralgia [Recovering/Resolving]
  - Headache [Unknown]
  - Chills [Unknown]

NARRATIVE: CASE EVENT DATE: 2020
